FAERS Safety Report 5073012-5 (Version None)
Quarter: 2006Q3

REPORT INFORMATION
  Report Type: 
  Country: None (occurrence: None)
  Receive Date: 20060802
  Receipt Date: 20060714
  Transmission Date: 20061208
  Serious: Yes (Hospitalization)
  Sender: FDA-Public Use
  Company Number: 2006090395

PATIENT
  Age: 82 Year
  Sex: Female

DRUGS (8)
  1. MIGLITOL                  (MIGLITOL) [Suspect]
     Indication: DIABETES MELLITUS
     Dosage: 150 MG (1 IN 1 D), ORAL
     Route: 048
     Dates: start: 20060619, end: 20060702
  2. GLYBURIDE [Concomitant]
  3. MICARDIS [Concomitant]
  4. AMLODIPINE [Concomitant]
  5. DIART (AZOSEMIDE) [Concomitant]
  6. RIZE (CLOTIAZEPAM) [Concomitant]
  7. POLYCARBOPHIL CALCIUM               (POLYCARBOPHIL CALCIUM) [Concomitant]
  8. PURSENNID            (SENNA LEAF) [Concomitant]

REACTIONS (8)
  - DIABETES MELLITUS INADEQUATE CONTROL [None]
  - FEELING ABNORMAL [None]
  - HYPERGLYCAEMIA [None]
  - HYPOGLYCAEMIA [None]
  - HYPOREFLEXIA [None]
  - HYPOTONIA [None]
  - LOSS OF CONSCIOUSNESS [None]
  - PUPILLARY REFLEX IMPAIRED [None]
